APPROVED DRUG PRODUCT: MIDAZOLAM HYDROCHLORIDE
Active Ingredient: MIDAZOLAM HYDROCHLORIDE
Strength: EQ 2MG BASE/ML
Dosage Form/Route: SYRUP;ORAL
Application: A076379 | Product #001 | TE Code: AA
Applicant: PADAGIS US LLC
Approved: May 2, 2005 | RLD: No | RS: No | Type: RX